FAERS Safety Report 8157858 (Version 4)
Quarter: 2013Q4

REPORT INFORMATION
  Report Type: Report from Study
  Country: US (occurrence: US)
  Receive Date: 20110927
  Receipt Date: 20131024
  Transmission Date: 20140711
  Serious: Yes (Hospitalization)
  Sender: FDA-Public Use
  Company Number: US-UCBSA-041414

PATIENT
  Age: 32 Year
  Sex: Male
  Weight: 119.7 kg

DRUGS (21)
  1. CIMZIA [Suspect]
     Indication: CROHN^S DISEASE
     Route: 058
     Dates: start: 20110418
  2. METHOTREXATE [Concomitant]
     Indication: CROHN^S DISEASE
     Route: 058
     Dates: start: 201104, end: 2011
  3. METHOTREXATE [Concomitant]
     Indication: CROHN^S DISEASE
     Dates: start: 2011, end: 2011
  4. METHOTREXATE [Concomitant]
     Indication: CROHN^S DISEASE
     Route: 058
     Dates: start: 2011
  5. AUGMENTIN [Concomitant]
     Indication: CROHN^S DISEASE
     Dates: start: 201009
  6. FLAGYL [Concomitant]
     Indication: CROHN^S DISEASE
     Dates: start: 201007
  7. CIPRO [Concomitant]
     Indication: CROHN^S DISEASE
     Dates: start: 201007
  8. PREDNISONE [Concomitant]
     Indication: CROHN^S DISEASE
     Dates: start: 200611
  9. PROTONIX [Concomitant]
     Indication: CROHN^S DISEASE
     Dosage: DAILY DOSE: 40 MG
  10. VITAMIN D SUPPLEMENT [Concomitant]
     Indication: CROHN^S DISEASE
  11. CALCIUM SUPPLEMENT [Concomitant]
     Indication: CROHN^S DISEASE
  12. FOLIC ACID [Concomitant]
     Dosage: TOTAL DALY DOSE : 1 MG
  13. DOCUSATE [Concomitant]
  14. OXYCODONE [Concomitant]
     Indication: PAIN
     Dosage: 5 MG ,AS NECESSARY
     Route: 048
  15. OXYCODONE [Concomitant]
     Indication: PAIN
     Dosage: 20 MG Q4 X 5 DAYS , AS NECESSARY
     Route: 048
  16. OXYCODONE [Concomitant]
     Indication: PAIN
     Dosage: 10 MG ,EVERY 6 HOURS AS NECESSARY
     Route: 048
  17. ONDANSETRON [Concomitant]
     Indication: NAUSEA
     Dosage: 4 MG Q6
  18. BUDESONIDE [Concomitant]
     Dosage: TOTAL DAILY DOSE : 9 MG
     Route: 048
  19. DILAUDID [Concomitant]
     Indication: PAIN
     Route: 048
     Dates: end: 2011
  20. DILAUDID [Concomitant]
     Indication: PAIN
     Route: 042
     Dates: start: 2011, end: 2011
  21. DILAUDID [Concomitant]
     Indication: PAIN
     Route: 048
     Dates: start: 2011

REACTIONS (2)
  - Crohn^s disease [Recovered/Resolved]
  - Anal fistula [Recovered/Resolved]
